FAERS Safety Report 9555346 (Version 1)
Quarter: 2013Q3

REPORT INFORMATION
  Report Type: Spontaneous
  Country: US (occurrence: None)
  Receive Date: 20130816
  Receipt Date: 20130816
  Transmission Date: 20140515
  Serious: No
  Sender: FDA-Public Use
  Company Number: US-011859

PATIENT
  Age: 51 Year
  Sex: Male
  Weight: 102.51 kg

DRUGS (3)
  1. PICO-SALAX (NOT SPECIFIED) [Suspect]
     Indication: BOWEL PREPARATION
     Dosage: FIRST PACKET ON 9-MAY-2013 AT 4PM; SECOND PACKET ON 09-MAY-2013 AT 7 PM)?
     Dates: start: 20130509, end: 20130509
  2. TIZANIDINE [Concomitant]
  3. MORPHONE [Concomitant]

REACTIONS (1)
  - Drug ineffective [None]
